FAERS Safety Report 16204526 (Version 1)
Quarter: 2019Q2

REPORT INFORMATION
  Report Type: Report from Study
  Country: US (occurrence: US)
  Receive Date: 20190416
  Receipt Date: 20190416
  Transmission Date: 20190711
  Serious: Yes (Hospitalization)
  Sender: FDA-Public Use
  Company Number: US-ACTELION-A-NJ2019-188293

PATIENT
  Sex: Female
  Weight: 83.9 kg

DRUGS (3)
  1. AMLODIPINE [Concomitant]
     Active Substance: AMLODIPINE BESYLATE
  2. OPSUMIT [Suspect]
     Active Substance: MACITENTAN
     Indication: PULMONARY HYPERTENSION
     Dosage: 10 MG, QD
     Route: 048
     Dates: end: 20190315
  3. ELIQUIS [Concomitant]
     Active Substance: APIXABAN

REACTIONS (7)
  - Dyspnoea [Unknown]
  - Asthenia [Unknown]
  - Hospitalisation [Unknown]
  - Headache [Unknown]
  - Fatigue [Unknown]
  - Peripheral swelling [Unknown]
  - Diarrhoea [Unknown]
